FAERS Safety Report 6303763-3 (Version None)
Quarter: 2009Q4

REPORT INFORMATION
  Report Type: 
  Country: None (occurrence: None)
  Receive Date: 20090810
  Receipt Date: 20090727
  Transmission Date: 20100525
  Serious: Yes (Hospitalization)
  Sender: FDA-Public Use
  Company Number: NZ-GENENTECH-285477

PATIENT
  Sex: Female

DRUGS (4)
  1. BEVACIZUMAB [Suspect]
     Indication: BREAST CANCER
     Dosage: 15 MG/M2, Q3W
     Route: 042
     Dates: start: 20090506
  2. EPIRUBICIN [Suspect]
     Indication: BREAST CANCER
     Dosage: 175 MG, Q3W
     Route: 042
     Dates: start: 20090506
  3. CYCLOPHOSPHAMIDE [Suspect]
     Indication: BREAST CANCER
     Dosage: 850 MG, Q3W
     Route: 042
     Dates: start: 20090506
  4. FLUOROURACIL [Suspect]
     Indication: BREAST CANCER
     Dosage: 850 MG, Q3W
     Route: 042
     Dates: start: 20090506

REACTIONS (1)
  - PYREXIA [None]
